FAERS Safety Report 8150470-0 (Version None)
Quarter: 2012Q1

REPORT INFORMATION
  Report Type: 
  Country: None (occurrence: None)
  Receive Date: 20120220
  Receipt Date: 20120210
  Transmission Date: 20120608
  Serious: Yes (Other)
  Sender: FDA-Public Use
  Company Number: US-BAYER-2012-015308

PATIENT
  Age: 71 Year
  Sex: Male
  Weight: 95 kg

DRUGS (34)
  1. ANCEF [Concomitant]
     Dosage: UNK
     Dates: start: 20051206
  2. LISINOPRIL [Concomitant]
  3. NAPROXEN [Concomitant]
  4. MIDAZOLAM [Concomitant]
     Dosage: UNK
     Dates: start: 20051205, end: 20051205
  5. HEPARIN [Concomitant]
     Dosage: UNK
     Dates: start: 20051205, end: 20051205
  6. DDAVP [Concomitant]
     Dosage: UNK
     Dates: start: 20051205, end: 20051205
  7. FRESH FROZEN PLASMA [Concomitant]
     Dosage: 10 U, UNK
  8. EPOGEN [Concomitant]
     Dosage: 10000 U, BIW
  9. TRASYLOL [Suspect]
     Dosage: 50 CC/ HR LOADING DOSE
     Dates: start: 20051205, end: 20051205
  10. SOLU-MEDROL [Concomitant]
     Dosage: UNK
     Dates: start: 20051205, end: 20051205
  11. TRASYLOL [Suspect]
     Indication: CORONARY ARTERY BYPASS
     Dosage: 200 CC PUMP PRIME
     Route: 042
     Dates: start: 20051205, end: 20051205
  12. ATENOLOL [Concomitant]
     Dosage: 25 MG, BID
  13. LIPITOR [Concomitant]
  14. ACETYLSALICYLIC ACID SRT [Concomitant]
  15. CONTRAST MEDIA [Concomitant]
     Indication: CATHETERISATION CARDIAC
     Dosage: UNK
     Dates: start: 20051205
  16. METFORMIN HCL [Concomitant]
  17. GLYBURIDE [Concomitant]
  18. ISOFLURANE [Concomitant]
     Dosage: UNK
     Dates: start: 20051205, end: 20051205
  19. PROPOFOL [Concomitant]
     Dosage: UNK
     Dates: start: 20051205, end: 20051205
  20. PROTAMINE SULFATE [Concomitant]
     Dosage: UNK
     Dates: start: 20051205, end: 20051205
  21. RED BLOOD CELLS [Concomitant]
     Dosage: 3 U, UNK
     Dates: start: 20051205
  22. TRASYLOL [Suspect]
     Dosage: 200 MG, LOADING DOSE
     Dates: start: 20051205, end: 20051205
  23. PROTONIX [Concomitant]
     Dosage: 40 MG, QD
  24. NOVOLOG [Concomitant]
     Dosage: 24 U,  IN AM
  25. ROCURONIUM BROMIDE [Concomitant]
     Dosage: UNK
     Dates: start: 20051205, end: 20051205
  26. VANCOMYCIN [Concomitant]
     Dosage: UNK
     Dates: start: 20051205, end: 20051205
  27. SYNTHROID [Concomitant]
     Dosage: 25 MG, QD
  28. FERROUS GLUCONATE [Concomitant]
     Dosage: 325 MG, QD
  29. EXTRA STRENGTH TYLENOL [Concomitant]
  30. GEMFIBROZIL [Concomitant]
  31. FERROUS SULFATE TAB [Concomitant]
     Dosage: 325 MG, QD
  32. NOVOLOG [Concomitant]
     Dosage: 16 U IN PM
  33. FENTANYL [Concomitant]
     Dosage: UNK
     Dates: start: 20051205, end: 20051205
  34. PLATELETS [Concomitant]
     Dosage: 2 U, UNK

REACTIONS (2)
  - RENAL TUBULAR NECROSIS [None]
  - RENAL FAILURE ACUTE [None]
